FAERS Safety Report 7363361-X (Version None)
Quarter: 2011Q1

REPORT INFORMATION
  Report Type: 
  Country: None (occurrence: None)
  Receive Date: 20110321
  Receipt Date: 20110226
  Transmission Date: 20110831
  Serious: No
  Sender: FDA-Public Use
  Company Number: US-B.I. PHARMACEUTICALS,INC./RIDGEFIELD-2011-BP-07150BP

PATIENT
  Age: 51 Year
  Sex: Female

DRUGS (2)
  1. ZANTAC [Suspect]
     Indication: DYSPEPSIA
     Dosage: 300 MG
     Route: 048
     Dates: start: 20101101, end: 20110219
  2. ZANTAC [Suspect]
     Dosage: 150 MG
     Route: 048
     Dates: start: 20110224, end: 20110224

REACTIONS (4)
  - SKIN BURNING SENSATION [None]
  - URINE OUTPUT DECREASED [None]
  - DRY MOUTH [None]
  - BURNING SENSATION [None]
